FAERS Safety Report 5833707-X (Version None)
Quarter: 2008Q3

REPORT INFORMATION
  Report Type: 
  Country: None (occurrence: None)
  Receive Date: 20080804
  Receipt Date: 20080804
  Transmission Date: 20090109
  Serious: Yes (Life-Threatening, Hospitalization)
  Sender: FDA-Public Use
  Company Number: None

PATIENT
  Age: 30 Year
  Sex: Male
  Weight: 83.9154 kg

DRUGS (2)
  1. OXYCODONE 5/APAP 500 [Suspect]
     Indication: PAIN
     Dosage: 1-2 TABLETS EVERY 4-6 HOURS PO
     Route: 048
     Dates: start: 20070726, end: 20070727
  2. PENICILLIN VK [Suspect]
     Indication: INFECTION
     Dosage: 1 TABLET EVERY 6 HOURS PO
     Route: 048
     Dates: start: 20070726, end: 20070727

REACTIONS (4)
  - BRAIN INJURY [None]
  - GASTRIC DISORDER [None]
  - ILL-DEFINED DISORDER [None]
  - LOSS OF CONSCIOUSNESS [None]
